FAERS Safety Report 4654510-2 (Version None)
Quarter: 2005Q2

REPORT INFORMATION
  Report Type: 
  Country: None (occurrence: None)
  Receive Date: 20050504
  Receipt Date: 20050504
  Transmission Date: 20051028
  Serious: Yes (Death)
  Sender: FDA-Public Use
  Company Number: None

PATIENT
  Sex: Female
  Weight: 67.5 kg

DRUGS (1)
  1. ENBREL [Suspect]
     Indication: RHEUMATOID ARTHRITIS
     Dosage: SUBCUTANEO
     Route: 058

REACTIONS (4)
  - DISEASE PROGRESSION [None]
  - PNEUMONIA [None]
  - SEPSIS [None]
  - SEPTIC SHOCK [None]
